FAERS Safety Report 8074151-7 (Version None)
Quarter: 2012Q1

REPORT INFORMATION
  Report Type: 
  Country: None (occurrence: None)
  Receive Date: 20120126
  Receipt Date: 20120120
  Transmission Date: 20120608
  Serious: Yes (Other)
  Sender: FDA-Public Use
  Company Number: US-PFIZER INC-2012017235

PATIENT
  Sex: Female
  Weight: 104 kg

DRUGS (1)
  1. NEURONTIN [Suspect]
     Indication: NEUROPATHY PERIPHERAL
     Dosage: 100 MG, 3X/DAY
     Route: 048
     Dates: start: 20110101, end: 20110101

REACTIONS (5)
  - OEDEMA PERIPHERAL [None]
  - GENERALISED OEDEMA [None]
  - ERYTHEMA [None]
  - BLOOD CHOLESTEROL INCREASED [None]
  - ANTIDEPRESSANT DRUG LEVEL BELOW THERAPEUTIC [None]
